FAERS Safety Report 22744029 (Version 4)
Quarter: 2024Q4

REPORT INFORMATION
  Report Type: Spontaneous
  Country: US (occurrence: US)
  Receive Date: 20230724
  Receipt Date: 20241004
  Transmission Date: 20250115
  Serious: No
  Sender: JOHNSON AND JOHNSON
  Company Number: US-JNJFOC-20230724961

PATIENT

DRUGS (2)
  1. WOMENS ROGAINE UNSCENTED [Suspect]
     Active Substance: MINOXIDIL
     Indication: Alopecia
     Dosage: REDUCED USAGE TO 3 TIMES A WEEK FOR A FEW MONTHS,
     Route: 061
  2. WOMENS ROGAINE UNSCENTED [Suspect]
     Active Substance: MINOXIDIL
     Dosage: AS DIRECTED, 1/2 CAPFUL ONCE PER DAY
     Route: 061

REACTIONS (2)
  - Hair texture abnormal [Unknown]
  - Alopecia [Unknown]
